FAERS Safety Report 7396010-5 (Version None)
Quarter: 2011Q1

REPORT INFORMATION
  Report Type: 
  Country: None (occurrence: None)
  Receive Date: 20110325
  Receipt Date: 20110310
  Transmission Date: 20110831
  Serious: Yes (Other)
  Sender: FDA-Public Use
  Company Number: 029641

PATIENT
  Age: 71 Year
  Sex: Male

DRUGS (11)
  1. PIRACETAM [Concomitant]
  2. PHENOBARBITAL SRT [Concomitant]
  3. MIDAZOLAM [Concomitant]
  4. LORAZEPAM [Concomitant]
  5. TOPIRAMATE [Concomitant]
  6. VIMPAT [Suspect]
     Dosage: (50 MG, 50MGX2)
  7. ASPIRIN [Concomitant]
  8. KEPPRA [Suspect]
  9. VALPROIC ACID [Concomitant]
  10. PHENYTOIN [Concomitant]
  11. PROPOFOL [Concomitant]

REACTIONS (9)
  - VISUAL IMPAIRMENT [None]
  - SACCADIC EYE MOVEMENT [None]
  - CREUTZFELDT-JAKOB DISEASE [None]
  - DEMENTIA [None]
  - AMNESIA [None]
  - ATAXIA [None]
  - INGUINAL HERNIA [None]
  - DISTURBANCE IN ATTENTION [None]
  - LEUKOENCEPHALOPATHY [None]
